FAERS Safety Report 7164512-2 (Version None)
Quarter: 2010Q4

REPORT INFORMATION
  Report Type: 
  Country: None (occurrence: None)
  Receive Date: 20101123
  Receipt Date: 20100802
  Transmission Date: 20110411
  Serious: No
  Sender: FDA-Public Use
  Company Number: 016491

PATIENT
  Sex: Female

DRUGS (1)
  1. CIMZIA [Suspect]
     Indication: CROHN'S DISEASE
     Dosage: (400 MG 1X/4 WEEKS SUBCUTANEOUS)
     Route: 058
     Dates: start: 20090801, end: 20100601

REACTIONS (1)
  - DRUG INEFFECTIVE [None]
